FAERS Safety Report 8438714-9 (Version None)
Quarter: 2012Q2

REPORT INFORMATION
  Report Type: 
  Country: None (occurrence: None)
  Receive Date: 20120611
  Receipt Date: 20120611
  Transmission Date: 20120825
  Serious: Yes (Life-Threatening)
  Sender: FDA-Public Use
  Company Number: None

PATIENT
  Age: 16 Year
  Sex: Male
  Weight: 88.4514 kg

DRUGS (3)
  1. KEPPRA XR [Concomitant]
  2. LEVETIRACETAM [Suspect]
     Indication: CONVULSION
     Dosage: 500MG DAILY PO
     Route: 048
     Dates: start: 20111128, end: 20111223
  3. LEVETIRACETAM [Suspect]
     Indication: CONVULSION
     Dosage: 500MG DAILY PO
     Route: 048
     Dates: start: 20120110, end: 20120314

REACTIONS (6)
  - BLOOD PRESSURE INCREASED [None]
  - VOMITING [None]
  - HEART RATE INCREASED [None]
  - GRAND MAL CONVULSION [None]
  - ASPIRATION [None]
  - PRODUCT SUBSTITUTION ISSUE [None]
